FAERS Safety Report 7919442-2 (Version None)
Quarter: 2011Q4

REPORT INFORMATION
  Report Type: 
  Country: None (occurrence: None)
  Receive Date: 20111115
  Receipt Date: 20111108
  Transmission Date: 20120403
  Serious: Yes (Hospitalization)
  Sender: FDA-Public Use
  Company Number: CA-UCBSA-045365

PATIENT
  Age: 66 Year
  Sex: Female
  Weight: 61.36 kg

DRUGS (2)
  1. CIMZIA [Suspect]
     Dosage: WKS 0-2-4
     Route: 058
     Dates: start: 20110725, end: 20110101
  2. CIMZIA [Suspect]
     Indication: RHEUMATOID ARTHRITIS
     Route: 058
     Dates: start: 20110101, end: 20111031

REACTIONS (4)
  - PLEURAL EFFUSION [None]
  - FATIGUE [None]
  - DYSPNOEA [None]
  - COUGH [None]
